FAERS Safety Report 13265979 (Version 3)
Quarter: 2017Q1

REPORT INFORMATION
  Report Type: Spontaneous
  Country: US (occurrence: US)
  Receive Date: 20170223
  Receipt Date: 20170329
  Transmission Date: 20170428
  Serious: Yes (Other)
  Sender: FDA-Public Use
  Company Number: US-009507513-1702USA007339

PATIENT
  Age: 24 Year
  Sex: Female
  Weight: 124.26 kg

DRUGS (1)
  1. NEXPLANON [Suspect]
     Active Substance: ETONOGESTREL
     Dosage: UNK
     Route: 059
     Dates: start: 20170208, end: 20170214

REACTIONS (2)
  - Cellulitis [Recovered/Resolved]
  - Wound infection bacterial [Not Recovered/Not Resolved]

NARRATIVE: CASE EVENT DATE: 201702
